FAERS Safety Report 9544274 (Version 3)
Quarter: 2014Q4

REPORT INFORMATION
  Report Type: Report from Study
  Country: DE (occurrence: DE)
  Receive Date: 20130923
  Receipt Date: 20141008
  Transmission Date: 20150529
  Serious: Yes (Hospitalization, Other)
  Sender: FDA-Public Use
  Company Number: DE-ABBVIE-13P-062-1097799-00

PATIENT
  Age: 56 Year
  Sex: Female
  Weight: 115 kg

DRUGS (6)
  1. DICLOFENAC [Concomitant]
     Active Substance: DICLOFENAC
     Indication: PRODUCT USED FOR UNKNOWN INDICATION
  2. METEX [Suspect]
     Active Substance: METFORMIN HYDROCHLORIDE
     Indication: PSORIATIC ARTHROPATHY
     Route: 058
     Dates: start: 20110830, end: 20130501
  3. METAMIZOL [Concomitant]
     Active Substance: METAMIZOLE SODIUM
     Indication: PRODUCT USED FOR UNKNOWN INDICATION
  4. HUMIRA [Suspect]
     Active Substance: ADALIMUMAB
     Indication: PSORIATIC ARTHROPATHY
     Route: 058
     Dates: start: 20100119, end: 20130501
  5. CIPROFLOXACIN. [Concomitant]
     Active Substance: CIPROFLOXACIN
     Indication: PRODUCT USED FOR UNKNOWN INDICATION
  6. HUMIRA [Suspect]
     Active Substance: ADALIMUMAB
     Indication: PSORIASIS

REACTIONS (12)
  - Arthralgia [Unknown]
  - Joint swelling [Unknown]
  - Psoriasis [Unknown]
  - Osteoarthritis [Unknown]
  - Arthritis [Recovering/Resolving]
  - Psoriatic arthropathy [Unknown]
  - Skin disorder [Recovering/Resolving]
  - Drug ineffective [Unknown]
  - Laboratory test abnormal [Unknown]
  - Skin erosion [Unknown]
  - Pancytopenia [Not Recovered/Not Resolved]
  - Drug effect decreased [Unknown]

NARRATIVE: CASE EVENT DATE: 201305
